FAERS Safety Report 25492676 (Version 1)
Quarter: 2025Q2

REPORT INFORMATION
  Report Type: Spontaneous
  Country: ES (occurrence: ES)
  Receive Date: 20250630
  Receipt Date: 20250630
  Transmission Date: 20250717
  Serious: Yes (Other)
  Sender: Kenvue
  Company Number: ES-ELI_LILLY_AND_COMPANY-ES202506005766

PATIENT

DRUGS (6)
  1. LOPERAMIDE HYDROCHLORIDE [Suspect]
     Active Substance: LOPERAMIDE HYDROCHLORIDE
     Indication: Diarrhoea
     Route: 065
  2. ABEMACICLIB [Suspect]
     Active Substance: ABEMACICLIB
     Indication: Breast cancer
     Route: 048
     Dates: start: 202408
  3. ABEMACICLIB [Suspect]
     Active Substance: ABEMACICLIB
     Route: 048
  4. EXEMESTANE [Suspect]
     Active Substance: EXEMESTANE
     Indication: Breast cancer
     Dosage: UNK UNK, ONCE IN A MONTH
     Route: 065
  5. RACECADOTRIL [Suspect]
     Active Substance: RACECADOTRIL
     Indication: Diarrhoea
     Route: 065
  6. GOSERELIN [Concomitant]
     Active Substance: GOSERELIN
     Indication: Breast cancer
     Dosage: UNK UNK, ONCE IN A MONTH (MONTHLY (1/M))
     Route: 065

REACTIONS (7)
  - Diarrhoea [Recovering/Resolving]
  - Illness [Recovering/Resolving]
  - Pain [Recovering/Resolving]
  - Decreased immune responsiveness [Recovered/Resolved]
  - Blood cholesterol increased [Recovering/Resolving]
  - Alopecia [Recovering/Resolving]
  - Fatigue [Recovering/Resolving]
